FAERS Safety Report 8009220-0 (Version None)
Quarter: 2011Q4

REPORT INFORMATION
  Report Type: 
  Country: None (occurrence: None)
  Receive Date: 20111227
  Receipt Date: 20111222
  Transmission Date: 20120403
  Serious: Yes (Life-Threatening, Hospitalization)
  Sender: FDA-Public Use
  Company Number: NL-ASTRAZENECA-2011SE77885

PATIENT
  Age: 51 Year
  Sex: Male
  Weight: 115 kg

DRUGS (6)
  1. ANAFRANIL [Concomitant]
     Route: 048
     Dates: start: 19800101
  2. OXAZEPAM [Concomitant]
     Route: 048
     Dates: start: 19800101
  3. SEROQUEL XR [Suspect]
     Indication: MAJOR DEPRESSION
     Route: 048
  4. ANAFRANIL [Concomitant]
     Route: 048
     Dates: start: 19800101
  5. PROMETHAZINE [Concomitant]
     Route: 048
     Dates: start: 19800101
  6. SEROQUEL XR [Suspect]
     Route: 048
     Dates: start: 20111213, end: 20111218

REACTIONS (1)
  - VENTRICULAR TACHYCARDIA [None]
